FAERS Safety Report 6431677-7 (Version None)
Quarter: 2009Q4

REPORT INFORMATION
  Report Type: 
  Country: None (occurrence: None)
  Receive Date: 20091103
  Receipt Date: 20091020
  Transmission Date: 20100525
  Serious: Yes (Life-Threatening, Hospitalization, Other)
  Sender: FDA-Public Use
  Company Number: 2009AL006861

PATIENT
  Age: 73 Year
  Sex: Female

DRUGS (16)
  1. DIAZEPAM [Suspect]
     Indication: INSOMNIA
     Dosage: 2 MG, QD; PO
     Route: 048
     Dates: start: 20090601, end: 20090801
  2. FEVERALL [Suspect]
     Indication: HEADACHE
     Dosage: PO
     Route: 048
  3. HYDROXYZINE HCL [Suspect]
     Indication: DRUG USE FOR UNKNOWN INDICATION
     Dosage: 50 MG, QD, PO
     Route: 048
     Dates: start: 20080801
  4. FLUVOXAMINE MALEATE [Suspect]
     Indication: ANTIDEPRESSANT THERAPY
     Dosage: 150 MG, QD, PO
     Route: 048
  5. FLUNITRAZEPAM [Concomitant]
  6. LEXOTAN [Concomitant]
  7. LAMICTAL [Concomitant]
  8. CAFFEINE [Concomitant]
  9. TETRAMIDE [Concomitant]
  10. ZYPREXA [Concomitant]
  11. MYSLEE [Concomitant]
  12. LENDORMIN [Concomitant]
  13. POLYCARBOPHIL CALCIUM [Concomitant]
  14. EVAMYL [Concomitant]
  15. HIRNAMIN [Concomitant]
  16. SILECE [Concomitant]

REACTIONS (2)
  - LYMPHOCYTE STIMULATION TEST POSITIVE [None]
  - STEVENS-JOHNSON SYNDROME [None]
